FAERS Safety Report 7682846-X (Version None)
Quarter: 2011Q3

REPORT INFORMATION
  Report Type: 
  Country: None (occurrence: None)
  Receive Date: 20110812
  Receipt Date: 20110812
  Transmission Date: 20111222
  Serious: Yes (Hospitalization)
  Sender: FDA-Public Use
  Company Number: None

PATIENT
  Age: 55 Year
  Sex: Male
  Weight: 65 kg

DRUGS (1)
  1. CYCLOBENZAPRINE [Suspect]
     Dosage: 10 MG TID PO
     Route: 048
     Dates: start: 20110401, end: 20110428

REACTIONS (1)
  - DIZZINESS [None]
